FAERS Safety Report 5055074-4 (Version None)
Quarter: 2006Q3

REPORT INFORMATION
  Report Type: 
  Country: None (occurrence: None)
  Receive Date: 20060717
  Receipt Date: 20060703
  Transmission Date: 20061208
  Serious: Yes (Death, Life-Threatening, Hospitalization)
  Sender: FDA-Public Use
  Company Number: MEDI-0004726

PATIENT
  Age: 35 Year
  Sex: Female

DRUGS (2)
  1. ETHYOL [Suspect]
     Indication: RADIOTHERAPY
     Dosage: 1 IN 1 D, INTRAVENOUS
     Route: 042
  2. RADIATION THERAPY [Concomitant]

REACTIONS (8)
  - CHILLS [None]
  - DISEASE PROGRESSION [None]
  - HYPOTENSION [None]
  - MYOCARDIAL INFARCTION [None]
  - PULMONARY EMBOLISM [None]
  - PYREXIA [None]
  - RASH ERYTHEMATOUS [None]
  - TACHYCARDIA [None]
